FAERS Safety Report 4588470-X (Version None)
Quarter: 2005Q1

REPORT INFORMATION
  Report Type: 
  Country: None (occurrence: None)
  Receive Date: 20050222
  Receipt Date: 20050214
  Transmission Date: 20050727
  Serious: Yes (Hospitalization)
  Sender: FDA-Public Use
  Company Number: FR-BRISTOL-MYERS SQUIBB COMPANY-12862744

PATIENT
  Age: 68 Year
  Sex: Female

DRUGS (1)
  1. MODITEN [Suspect]
     Indication: PSYCHOTIC DISORDER
     Route: 030
     Dates: start: 20041209, end: 20041209

REACTIONS (4)
  - HYPONATRAEMIA [None]
  - MALAISE [None]
  - PARKINSON'S DISEASE [None]
  - TARDIVE DYSKINESIA [None]
